FAERS Safety Report 4501992-2 (Version None)
Quarter: 2004Q4

REPORT INFORMATION
  Report Type: 
  Country: None (occurrence: None)
  Receive Date: 20041116
  Receipt Date: 20031113
  Transmission Date: 20050328
  Serious: Yes (Life-Threatening, Hospitalization)
  Sender: FDA-Public Use
  Company Number: GB-BRISTOL-MYERS SQUIBB COMPANY-12435814

PATIENT
  Age: 42 Year
  Sex: Male
  Weight: 57 kg

DRUGS (2)
  1. ARIPIPRAZOLE [Suspect]
     Indication: SCHIZOPHRENIA
     Dosage: INITIAL DOSE 15 MG/DAY.
     Route: 048
  2. EFFEXOR [Concomitant]
     Dosage: 150 MG/DAY TO 225 MG/DAY
     Route: 048

REACTIONS (3)
  - CATATONIA [None]
  - NEUROLEPTIC MALIGNANT SYNDROME [None]
  - TACHYCARDIA [None]
